FAERS Safety Report 17676063 (Version 1)
Quarter: 2020Q2

REPORT INFORMATION
  Report Type: Report from Study
  Country: GB (occurrence: GB)
  Receive Date: 20200416
  Receipt Date: 20200416
  Transmission Date: 20200714
  Serious: Yes (Other)
  Sender: FDA-Public Use
  Company Number: GB-SAMSUNG BIOEPIS-SB-2020-12915

PATIENT
  Sex: Male

DRUGS (1)
  1. BENEPALI [Suspect]
     Active Substance: ETANERCEPT
     Indication: SERONEGATIVE ARTHRITIS
     Route: 058
     Dates: start: 20171205

REACTIONS (3)
  - Immunodeficiency [Unknown]
  - Product use in unapproved indication [Unknown]
  - Nasopharyngitis [Unknown]
